FAERS Safety Report 20572182 (Version 1)
Quarter: 2022Q1

REPORT INFORMATION
  Report Type: Spontaneous
  Country: KR (occurrence: None)
  Receive Date: 20220309
  Receipt Date: 20220309
  Transmission Date: 20220423
  Serious: Yes (Other)
  Sender: FDA-Public Use
  Company Number: 2022A103781

PATIENT
  Sex: Female

DRUGS (2)
  1. OLAPARIB [Suspect]
     Active Substance: OLAPARIB
     Indication: Fallopian tube cancer stage III
     Dosage: 150MG 2T BID (NAUSEA, FATIGUE)-} (100+150)MG, BID (NAUSEA, DECREASED APPETITE)-} 100MG 2T, BID, D...
     Route: 048
     Dates: start: 202103, end: 202104
  2. OLAPARIB [Suspect]
     Active Substance: OLAPARIB
     Indication: Fallopian tube cancer stage III
     Dosage: 150MG 2T BID (NAUSEA, FATIGUE)-} (100+150)MG, BID (NAUSEA, DECREASED APPETITE)-} 100MG 2T, BID, D...
     Route: 048
     Dates: start: 202109

REACTIONS (10)
  - Hemiparesis [Unknown]
  - Basal ganglia haemorrhage [Unknown]
  - Cerebral haemorrhage [Unknown]
  - Intraventricular haemorrhage [Unknown]
  - Transient ischaemic attack [Unknown]
  - Hypertension [Unknown]
  - Nausea [Unknown]
  - Fatigue [Unknown]
  - Decreased appetite [Unknown]
  - Ill-defined disorder [Unknown]

NARRATIVE: CASE EVENT DATE: 20210401
